FAERS Safety Report 13510022 (Version 6)
Quarter: 2019Q2

REPORT INFORMATION
  Report Type: Spontaneous
  Country: US (occurrence: US)
  Receive Date: 20170503
  Receipt Date: 20190426
  Transmission Date: 20190711
  Serious: No
  Sender: FDA-Public Use
  Company Number: US-SA-2017SA064438

PATIENT
  Age: 66 Year
  Sex: Female

DRUGS (7)
  1. PRALUENT [Suspect]
     Active Substance: ALIROCUMAB
     Dosage: 75 MG, QOW
     Route: 058
  2. COMBIVENT [Concomitant]
     Active Substance: ALBUTEROL SULFATE\IPRATROPIUM BROMIDE
     Indication: ASTHMA
     Dosage: UNK UNK,PRN
     Dates: start: 2001
  3. PRALUENT [Suspect]
     Active Substance: ALIROCUMAB
     Indication: BLOOD CHOLESTEROL
     Dosage: 75 MG,UNK
     Route: 065
     Dates: start: 201611, end: 2017
  4. LYRICA [Concomitant]
     Active Substance: PREGABALIN
     Indication: BACK DISORDER
     Dosage: 3 DF,QD
     Dates: start: 2014
  5. PRALUENT [Suspect]
     Active Substance: ALIROCUMAB
     Dosage: 150 MG,QOW
     Route: 058
     Dates: start: 20170315
  6. VALSARTAN/HYDROCHLOROTHIAZIDE [Concomitant]
     Active Substance: HYDROCHLOROTHIAZIDE\VALSARTAN
     Indication: BLOOD PRESSURE MEASUREMENT
     Dosage: 1 DF,QD
     Dates: start: 2003
  7. ACICLOVIR [Concomitant]
     Active Substance: ACYCLOVIR
     Indication: DERMATITIS ALLERGIC
     Dosage: 1 DF,TID
     Dates: start: 2014

REACTIONS (4)
  - Arthralgia [Recovered/Resolved]
  - Muscle spasms [Recovered/Resolved]
  - Myalgia [Recovered/Resolved]
  - Limb discomfort [Not Recovered/Not Resolved]

NARRATIVE: CASE EVENT DATE: 20180601
